FAERS Safety Report 23218460 (Version 1)
Quarter: 2023Q4

REPORT INFORMATION
  Report Type: Spontaneous
  Country: US (occurrence: None)
  Receive Date: 20231122
  Receipt Date: 20231122
  Transmission Date: 20240110
  Serious: Yes (Other)
  Sender: FDA-Public Use
  Company Number: None

PATIENT
  Age: 45 Year
  Sex: Male
  Weight: 96.75 kg

DRUGS (1)
  1. RINVOQ [Suspect]
     Active Substance: UPADACITINIB
     Indication: Rheumatoid arthritis
     Dates: start: 20230501, end: 20230801

REACTIONS (5)
  - Blood cholesterol increased [None]
  - Blood triglycerides increased [None]
  - High density lipoprotein decreased [None]
  - Very low density lipoprotein increased [None]
  - Low density lipoprotein increased [None]

NARRATIVE: CASE EVENT DATE: 20230801
